FAERS Safety Report 23571049 (Version 1)
Quarter: 2024Q1

REPORT INFORMATION
  Report Type: Spontaneous
  Country: US (occurrence: None)
  Receive Date: 20240227
  Receipt Date: 20240227
  Transmission Date: 20240410
  Serious: Yes (Hospitalization)
  Sender: FDA-Public Use
  Company Number: None

PATIENT
  Sex: Male
  Weight: 95 kg

DRUGS (1)
  1. CYTARABINE [Suspect]
     Active Substance: CYTARABINE
     Dates: end: 20220304

REACTIONS (5)
  - Pharyngitis [None]
  - Cough [None]
  - Back pain [None]
  - White blood cell count decreased [None]
  - Coronavirus test positive [None]

NARRATIVE: CASE EVENT DATE: 20220319
